FAERS Safety Report 15106716 (Version 1)
Quarter: 2018Q3

REPORT INFORMATION
  Report Type: Spontaneous
  Country: US (occurrence: US)
  Receive Date: 20180704
  Receipt Date: 20180704
  Transmission Date: 20181010
  Serious: No
  Sender: FDA-Public Use
  Company Number: US-SA-2018SA178455

PATIENT
  Age: 61 Year
  Sex: Female
  Weight: 67.58 kg

DRUGS (11)
  1. LOSARTAN AND HYDROCHLOROTHIAZIDE [Concomitant]
     Active Substance: HYDROCHLOROTHIAZIDE\LOSARTAN POTASSIUM
     Dosage: 1 DF
     Route: 048
     Dates: start: 20170928
  2. STERILE WATER [Concomitant]
     Active Substance: WATER
     Dosage: UNK
     Route: 042
     Dates: start: 20170823
  3. NEXIUM [ESOMEPRAZOLE SODIUM] [Concomitant]
     Dosage: 1 DF
     Route: 048
     Dates: start: 20160810
  4. NORMAL SALINE [Concomitant]
     Active Substance: SODIUM CHLORIDE
     Dosage: 0.9 %
     Route: 042
     Dates: start: 20170823
  5. CEREZYME [Suspect]
     Active Substance: IMIGLUCERASE
     Dosage: 4000 UN
     Route: 041
     Dates: start: 20160811
  6. VITAMIN D [Concomitant]
     Active Substance: CHOLECALCIFEROL
     Dosage: UNK UNK, QD
     Route: 048
     Dates: start: 20160810
  7. SODIUM CHLORIDE. [Concomitant]
     Active Substance: SODIUM CHLORIDE
     Dosage: 0.9 %
     Route: 042
     Dates: start: 20170823
  8. METOPROLOL. [Concomitant]
     Active Substance: METOPROLOL
     Dosage: 1 DF, BID
     Route: 048
     Dates: start: 20180810
  9. EPINEPHRINE. [Concomitant]
     Active Substance: EPINEPHRINE
     Indication: ANAPHYLACTIC REACTION
     Dosage: 0.3 MG, PRN
     Route: 030
     Dates: start: 20170823
  10. CALCIUM [Concomitant]
     Active Substance: CALCIUM
     Dosage: UNK
     Route: 048
     Dates: start: 20160810
  11. LIDOCAINE. [Concomitant]
     Active Substance: LIDOCAINE
     Dosage: 4 %
     Route: 061
     Dates: start: 20170928

REACTIONS (1)
  - Herpes zoster [Unknown]
